FAERS Safety Report 8376733-1 (Version None)
Quarter: 2012Q1

REPORT INFORMATION
  Report Type: 
  Country: None (occurrence: None)
  Receive Date: 20120323
  Receipt Date: 20110216
  Transmission Date: 20120608
  Serious: Yes (Hospitalization)
  Sender: FDA-Public Use
  Company Number: 163-21880-10113213

PATIENT
  Age: 81 Year
  Sex: Male

DRUGS (6)
  1. REVLIMID [Suspect]
     Indication: MULTIPLE MYELOMA
     Dosage: 15 MG, QD X 21D, PO 10 MG, QD X 21D, PO
     Route: 048
     Dates: start: 20101214
  2. REVLIMID [Suspect]
     Indication: MULTIPLE MYELOMA
     Dosage: 15 MG, QD X 21D, PO 10 MG, QD X 21D, PO
     Route: 048
     Dates: start: 20101103, end: 20101101
  3. MULTIVITAMIN [Concomitant]
  4. RAMIPRIL [Concomitant]
  5. ZOCOR [Concomitant]
  6. FLOMAX [Concomitant]

REACTIONS (8)
  - NEUTROPENIA [None]
  - FATIGUE [None]
  - BODY TEMPERATURE INCREASED [None]
  - DIARRHOEA [None]
  - INFECTION [None]
  - PANCYTOPENIA [None]
  - BODY TEMPERATURE [None]
  - BLOOD PRESSURE DECREASED [None]
